FAERS Safety Report 6123650-3 (Version None)
Quarter: 2009Q1

REPORT INFORMATION
  Report Type: 
  Country: None (occurrence: None)
  Receive Date: 20090318
  Receipt Date: 20090318
  Transmission Date: 20090719
  Serious: Yes (Hospitalization)
  Sender: FDA-Public Use
  Company Number: None

PATIENT
  Age: 61 Year

DRUGS (2)
  1. LORAZEPAM [Suspect]
     Indication: ALCOHOL DETOXIFICATION
     Dosage: 2 MG PRN IM
     Route: 030
     Dates: start: 20090310, end: 20090310
  2. LORAZEPAM [Suspect]
     Indication: CONVULSION PROPHYLAXIS
     Dosage: 2 MG PRN IM
     Route: 030
     Dates: start: 20090310, end: 20090310

REACTIONS (2)
  - NO ADVERSE EVENT [None]
  - REFUSAL OF TREATMENT BY PATIENT [None]
